FAERS Safety Report 9095753 (Version 1)
Quarter: 2013Q1

REPORT INFORMATION
  Report Type: Spontaneous
  Country: DK (occurrence: None)
  Receive Date: 20130124
  Receipt Date: 20130124
  Transmission Date: 20140127
  Serious: Yes (Death)
  Sender: FDA-Public Use
  Company Number: 2013MA000595

PATIENT
  Age: 48 Year
  Sex: Male

DRUGS (7)
  1. FLUOXETINE [Suspect]
     Indication: ANXIETY
     Route: 048
  2. ZAPONEX [Suspect]
     Route: 048
     Dates: start: 20081124, end: 20120924
  3. SULPIRIDE [Concomitant]
  4. FLUOXETINE [Concomitant]
  5. PREGABALIN [Concomitant]
  6. VENTOLIN [Concomitant]
  7. CLOZAPINE [Concomitant]

REACTIONS (3)
  - Myocardial infarction [None]
  - Cardiac failure acute [None]
  - Ventricular hypertrophy [None]
